FAERS Safety Report 8386685-6 (Version None)
Quarter: 2012Q2

REPORT INFORMATION
  Report Type: 
  Country: None (occurrence: None)
  Receive Date: 20120523
  Receipt Date: 20120523
  Transmission Date: 20120825
  Serious: Yes (Hospitalization)
  Sender: FDA-Public Use
  Company Number: None

PATIENT
  Age: 73 Year
  Sex: Male
  Weight: 84.4 kg

DRUGS (5)
  1. INFED [Suspect]
     Indication: ANAEMIA
     Dosage: 25MG X1 IV
     Route: 042
     Dates: start: 20120112, end: 20120112
  2. COREG [Concomitant]
  3. LYRICA [Concomitant]
  4. ZOCOR [Concomitant]
  5. LISINOPRIL [Concomitant]

REACTIONS (3)
  - BACK PAIN [None]
  - UNRESPONSIVE TO STIMULI [None]
  - ANAPHYLACTIC REACTION [None]
